FAERS Safety Report 4837264-6 (Version None)
Quarter: 2005Q4

REPORT INFORMATION
  Report Type: 
  Country: None (occurrence: None)
  Receive Date: 20051122
  Receipt Date: 20051108
  Transmission Date: 20060501
  Serious: Yes (Death)
  Sender: FDA-Public Use
  Company Number: COT_0253_2005

PATIENT
  Age: 64 Year
  Sex: Male
  Weight: 84.369 kg

DRUGS (12)
  1. VENTAVIS [Suspect]
     Indication: PULMONARY HYPERTENSION
     Dosage: 5 MCG 6XD IH
     Route: 025
     Dates: start: 20050628, end: 20051101
  2. DEMADEX [Concomitant]
  3. SPIRIVA [Concomitant]
  4. PREDNISONE [Concomitant]
  5. CARDIZEM [Concomitant]
  6. ADVAIR DISKUS 100/50 [Concomitant]
  7. COUMADIN [Concomitant]
  8. IRON [Concomitant]
  9. POTASSIUM [Concomitant]
  10. SPIRONOLACTONE [Concomitant]
  11. METOLAZONE [Concomitant]
  12. PRILOSEC [Concomitant]

REACTIONS (3)
  - CHRONIC OBSTRUCTIVE PULMONARY DISEASE [None]
  - DISEASE PROGRESSION [None]
  - LUNG DISORDER [None]
